FAERS Safety Report 6521126-2 (Version None)
Quarter: 2009Q4

REPORT INFORMATION
  Report Type: 
  Country: None (occurrence: None)
  Receive Date: 20091222
  Receipt Date: 20091203
  Transmission Date: 20100525
  Serious: Yes (Other)
  Sender: FDA-Public Use
  Company Number: 2009003752

PATIENT
  Sex: Female

DRUGS (15)
  1. ERLOTINIB HYDROCHLORIDE [Suspect]
     Indication: NON-SMALL CELL LUNG CANCER
     Dosage: 150 MG,QD, ORAL
     Route: 048
     Dates: start: 20091022, end: 20091202
  2. SUNITINIB [Suspect]
     Indication: NON-SMALL CELL LUNG CANCER
     Dosage: 37.5 MG,QD, ORAL
     Route: 048
     Dates: start: 20091022, end: 20091202
  3. METHYLPHENIDATE HCL [Concomitant]
  4. FLUTICASONE PROPIONATE [Concomitant]
  5. LORATADINE [Concomitant]
  6. CLINDAMYCIN HCL [Concomitant]
  7. HYDROCORTISONE GEL 1% [Concomitant]
  8. ASPIRIN [Concomitant]
  9. BENZONATATE [Concomitant]
  10. GUAIFENESIN-CODEINE [Concomitant]
  11. VICODIN [Concomitant]
  12. LEVOTHYROXINE SODIUM [Concomitant]
  13. OMEGA 3 FATTY ACID [Concomitant]
  14. CALCIUM PLUS VITAMIN D [Concomitant]
  15. MULTI-VITAMIN [Concomitant]

REACTIONS (3)
  - MALIGNANT NEOPLASM PROGRESSION [None]
  - NON-SMALL CELL LUNG CANCER [None]
  - PULMONARY EMBOLISM [None]
